FAERS Safety Report 18338261 (Version 2)
Quarter: 2020Q4

REPORT INFORMATION
  Report Type: Report from Study
  Country: GB (occurrence: GB)
  Receive Date: 20201002
  Receipt Date: 20201102
  Transmission Date: 20210113
  Serious: Yes (Other)
  Sender: FDA-Public Use
  Company Number: NVSC2020GB261584

PATIENT
  Age: 65 Year
  Sex: Female

DRUGS (4)
  1. HYRIMOZ [Suspect]
     Active Substance: ADALIMUMAB-ADAZ
     Dosage: 40 MG, Q2W
     Route: 058
     Dates: start: 201911
  2. LEFLUNOMIDE. [Suspect]
     Active Substance: LEFLUNOMIDE
     Indication: PRODUCT USED FOR UNKNOWN INDICATION
     Dosage: UNK
     Route: 065
  3. HYRIMOZ [Suspect]
     Active Substance: ADALIMUMAB-ADAZ
     Dosage: UNK
     Route: 065
  4. HYRIMOZ [Suspect]
     Active Substance: ADALIMUMAB-ADAZ
     Indication: RHEUMATOID ARTHRITIS
     Dosage: 40 MG, Q2W
     Route: 058

REACTIONS (14)
  - Pain in extremity [Unknown]
  - Periarthritis [Unknown]
  - Asthenia [Unknown]
  - Movement disorder [Unknown]
  - Mobility decreased [Unknown]
  - Tooth loss [Unknown]
  - Cerebrovascular accident [Unknown]
  - Product dose omission issue [Unknown]
  - Fatigue [Unknown]
  - Paraesthesia [Unknown]
  - Malaise [Unknown]
  - Feeling abnormal [Recovering/Resolving]
  - Feeding disorder [Unknown]
  - Arthropathy [Unknown]

NARRATIVE: CASE EVENT DATE: 202001
